FAERS Safety Report 9499299 (Version 3)
Quarter: 2013Q4

REPORT INFORMATION
  Report Type: Report from Study
  Country: DE (occurrence: DE)
  Receive Date: 20130905
  Receipt Date: 20131022
  Transmission Date: 20140711
  Serious: Yes (Hospitalization)
  Sender: FDA-Public Use
  Company Number: DE-ROCHE-1269826

PATIENT
  Age: 56 Year
  Sex: Female
  Weight: 64 kg

DRUGS (5)
  1. BEVACIZUMAB [Suspect]
     Indication: OVARIAN CANCER
     Dosage: LAST DOSE PRIOR TO SAE ON 13/AUG/2013
     Route: 042
     Dates: start: 20130430, end: 20130916
  2. CARBOPLATIN [Suspect]
     Indication: OVARIAN CANCER
     Dosage: LAST DOSE PRIOR TO SAE ON 23/JUL/2013  WITH DAILY DOSE AUC 5
     Route: 042
     Dates: start: 20130409, end: 20130916
  3. PACLITAXEL [Suspect]
     Indication: OVARIAN CANCER
     Dosage: LAST DOSE PRIOR TO SAE ON 23/JUL/2013
     Route: 042
     Dates: start: 20130409, end: 20130916
  4. PANTOZOL (GERMANY) [Concomitant]
     Route: 042
     Dates: start: 20130826
  5. MONO-EMBOLEX [Concomitant]
     Indication: THROMBOSIS
     Dosage: STRENGTH 3000 I.E.
     Route: 058
     Dates: start: 20130826

REACTIONS (1)
  - Urostomy complication [Recovered/Resolved]
